FAERS Safety Report 7381420-2 (Version None)
Quarter: 2011Q1

REPORT INFORMATION
  Report Type: 
  Country: None (occurrence: None)
  Receive Date: 20110324
  Receipt Date: 20110324
  Transmission Date: 20110831
  Serious: No
  Sender: FDA-Public Use
  Company Number: None

PATIENT

DRUGS (1)
  1. LEVAQUIN [Suspect]
     Dosage: 500 MG BY MOUTH
     Route: 048

REACTIONS (17)
  - ABDOMINAL RIGIDITY [None]
  - DIZZINESS [None]
  - ABDOMINAL PAIN [None]
  - ARTHRALGIA [None]
  - NIGHTMARE [None]
  - BACK PAIN [None]
  - HALLUCINATION [None]
  - NIGHT SWEATS [None]
  - HYPOAESTHESIA [None]
  - TREMOR [None]
  - HYPERSENSITIVITY [None]
  - DIARRHOEA HAEMORRHAGIC [None]
  - MELAENA [None]
  - COLITIS ISCHAEMIC [None]
  - HEART RATE INCREASED [None]
  - CHILLS [None]
  - MALAISE [None]
